FAERS Safety Report 6244617-0 (Version None)
Quarter: 2009Q2

REPORT INFORMATION
  Report Type: 
  Country: None (occurrence: None)
  Receive Date: 20090625
  Receipt Date: 20090617
  Transmission Date: 20091009
  Serious: Yes (Life-Threatening, Other)
  Sender: FDA-Public Use
  Company Number: FI-PFIZER INC-2009193605

PATIENT
  Age: 62 Year

DRUGS (3)
  1. LYRICA [Suspect]
     Indication: BONE PAIN
     Dosage: EVERYDAY
     Route: 048
     Dates: start: 20080520, end: 20081001
  2. LYRICA [Interacting]
     Indication: INSOMNIA
  3. MIRTAZAPINE [Interacting]
     Indication: PAIN
     Dosage: EVERYDAY
     Route: 048
     Dates: start: 20080709, end: 20081001

REACTIONS (4)
  - DRUG INTERACTION [None]
  - ELECTROCARDIOGRAM QT PROLONGED [None]
  - LOSS OF CONSCIOUSNESS [None]
  - VENTRICULAR TACHYCARDIA [None]
